FAERS Safety Report 20633800 (Version 3)
Quarter: 2022Q2

REPORT INFORMATION
  Report Type: Report from Study
  Country: FR (occurrence: FR)
  Receive Date: 20220324
  Receipt Date: 20220516
  Transmission Date: 20220721
  Serious: Yes (Other)
  Sender: FDA-Public Use
  Company Number: FR-GILEAD-2022-0567587

PATIENT
  Sex: Female
  Weight: 83 kg

DRUGS (3)
  1. SACITUZUMAB GOVITECAN [Suspect]
     Active Substance: SACITUZUMAB GOVITECAN
     Indication: Triple negative breast cancer
     Dosage: 10 MG/KG CYCLE 1 DAY 1 CYCLE 1 DAY 8
     Route: 042
     Dates: start: 20211126, end: 20211210
  2. SACITUZUMAB GOVITECAN [Suspect]
     Active Substance: SACITUZUMAB GOVITECAN
     Dosage: 10 MG/KG CYCLE 2 DAY 1 CYCLE 2 DAY 8
     Route: 042
     Dates: start: 20211227, end: 20220103
  3. SACITUZUMAB GOVITECAN [Suspect]
     Active Substance: SACITUZUMAB GOVITECAN
     Dosage: 10 MG/KG 790 CYCLE 3 DAY 1 CYCLE 3 DAY 8
     Route: 042
     Dates: start: 20220118, end: 20220127

REACTIONS (2)
  - Neutropenia [Unknown]
  - Disease progression [Unknown]
